FAERS Safety Report 9666719 (Version 1)
Quarter: 2013Q4

REPORT INFORMATION
  Report Type: Spontaneous
  Country: US (occurrence: US)
  Receive Date: 20131104
  Receipt Date: 20131104
  Transmission Date: 20140711
  Serious: No
  Sender: FDA-Public Use
  Company Number: US-BIOGENIDEC-2013BI087272

PATIENT
  Age: 46 Year
  Sex: Female

DRUGS (2)
  1. TECFIDERA [Suspect]
     Indication: MULTIPLE SCLEROSIS
  2. AVONEX [Concomitant]
     Indication: MULTIPLE SCLEROSIS
     Route: 030
     Dates: start: 20010101

REACTIONS (6)
  - Nuclear magnetic resonance imaging abnormal [Unknown]
  - Optic neuritis [Unknown]
  - Mobility decreased [Unknown]
  - Dizziness [Unknown]
  - Vision blurred [Unknown]
  - Visual field defect [Unknown]
